FAERS Safety Report 9955972 (Version 1)
Quarter: 2014Q1

REPORT INFORMATION
  Report Type: Report from Study
  Country: US (occurrence: US)
  Receive Date: 20140304
  Receipt Date: 20140304
  Transmission Date: 20141002
  Serious: Yes (Hospitalization)
  Sender: FDA-Public Use
  Company Number: US-ABBVIE-13P-163-1090041-00

PATIENT
  Age: 39 Year
  Sex: Female

DRUGS (3)
  1. HUMIRA [Suspect]
     Indication: PSORIASIS
     Dates: start: 20121213, end: 20130103
  2. HUMIRA [Suspect]
     Dates: start: 20130214
  3. ESTRADIOL [Concomitant]
     Indication: HORMONE REPLACEMENT THERAPY
     Dates: start: 201302

REACTIONS (2)
  - Pelvic pain [Recovered/Resolved]
  - Drug ineffective [Not Recovered/Not Resolved]
